FAERS Safety Report 16868103 (Version 1)
Quarter: 2019Q3

REPORT INFORMATION
  Report Type: Spontaneous
  Country: US (occurrence: US)
  Receive Date: 20190930
  Receipt Date: 20190930
  Transmission Date: 20191005
  Serious: Yes (Other)
  Sender: FDA-Public Use
  Company Number: US-PFIZER INC-2019167856

PATIENT
  Age: 48 Year
  Sex: Male
  Weight: 72.57 kg

DRUGS (2)
  1. LYRICA [Suspect]
     Active Substance: PREGABALIN
     Indication: BACK PAIN
     Dosage: 150 MG, 3X/DAY
     Route: 048
  2. LYRICA [Suspect]
     Active Substance: PREGABALIN
     Indication: PAIN IN EXTREMITY

REACTIONS (5)
  - Drug dependence [Unknown]
  - Nausea [Unknown]
  - Diarrhoea [Unknown]
  - Malaise [Unknown]
  - Withdrawal syndrome [Unknown]
